FAERS Safety Report 20010779 (Version 2)
Quarter: 2021Q4

REPORT INFORMATION
  Report Type: Report from Study
  Country: US (occurrence: US)
  Receive Date: 20211028
  Receipt Date: 20211220
  Transmission Date: 20220303
  Serious: Yes (Hospitalization)
  Sender: FDA-Public Use
  Company Number: US-TAKEDA-2021TUS067050

PATIENT
  Sex: Female

DRUGS (4)
  1. TEDUGLUTIDE [Suspect]
     Active Substance: TEDUGLUTIDE
     Indication: Product used for unknown indication
     Dosage: 0.1800 (UNK UNIT)
     Route: 065
     Dates: start: 20181128
  2. TEDUGLUTIDE [Suspect]
     Active Substance: TEDUGLUTIDE
     Indication: Product used for unknown indication
     Dosage: 0.1800 (UNK UNIT)
     Route: 065
     Dates: start: 20181128
  3. TEDUGLUTIDE [Suspect]
     Active Substance: TEDUGLUTIDE
     Indication: Product used for unknown indication
     Dosage: 0.1800 (UNK UNIT)
     Route: 065
     Dates: start: 20181128
  4. TEDUGLUTIDE [Suspect]
     Active Substance: TEDUGLUTIDE
     Indication: Product used for unknown indication
     Dosage: 0.1800 (UNK UNIT)
     Route: 065
     Dates: start: 20181128

REACTIONS (2)
  - Hospitalisation [Unknown]
  - Gastrointestinal tube insertion [Recovering/Resolving]
